FAERS Safety Report 4445739-7 (Version None)
Quarter: 2004Q3

REPORT INFORMATION
  Report Type: 
  Country: None (occurrence: None)
  Receive Date: 20040910
  Receipt Date: 20040831
  Transmission Date: 20050211
  Serious: Yes (Hospitalization)
  Sender: FDA-Public Use
  Company Number: US-JNJFOC-20040800761

PATIENT
  Sex: Female
  Weight: 73.48 kg

DRUGS (8)
  1. DURAGESIC [Suspect]
     Route: 062
     Dates: start: 19970101
  2. DURAGESIC [Suspect]
     Route: 062
     Dates: start: 19970101
  3. DURAGESIC [Suspect]
     Route: 062
     Dates: start: 19970101
  4. DURAGESIC [Suspect]
     Route: 062
     Dates: start: 19970101
  5. SPIRONOLACTONE [Concomitant]
     Indication: FLUID RETENTION
     Route: 049
  6. CELEXA [Concomitant]
     Indication: ARTHRITIS
     Route: 049
  7. INSULIN [Concomitant]
     Route: 058
  8. COUMADIN [Concomitant]
     Indication: DRUG USE FOR UNKNOWN INDICATION
     Dosage: HAS TAKEN FOR A LONG TIME
     Route: 049

REACTIONS (8)
  - BLOOD POTASSIUM INCREASED [None]
  - DISORIENTATION [None]
  - DRUG INEFFECTIVE [None]
  - DRUG WITHDRAWAL SYNDROME [None]
  - HIP FRACTURE [None]
  - IRRITABILITY [None]
  - PAIN EXACERBATED [None]
  - PHARMACEUTICAL PRODUCT COMPLAINT [None]
